FAERS Safety Report 20440120 (Version 1)
Quarter: 2022Q1

REPORT INFORMATION
  Report Type: Spontaneous
  Country: US (occurrence: None)
  Receive Date: 20220205
  Receipt Date: 20220205
  Transmission Date: 20220423
  Serious: Yes (Other)
  Sender: FDA-Public Use
  Company Number: None

PATIENT
  Age: 72 Year
  Sex: Female
  Weight: 128.25 kg

DRUGS (7)
  1. PREGABALIN [Suspect]
     Active Substance: PREGABALIN
     Indication: Pain
     Dosage: OTHER QUANTITY : 1 CAPSULE(S);?FREQUENCY : TWICE A DAY;?
     Route: 048
     Dates: start: 20220202, end: 20220202
  2. amlodipine 10mg QD [Concomitant]
  3. enalapril10mg QD [Concomitant]
  4. HCTZ 25mgQD [Concomitant]
  5. Generic Toprol 37.5mg QD [Concomitant]
  6. ASPIRIN [Concomitant]
     Active Substance: ASPIRIN
  7. Vit D QD [Concomitant]

REACTIONS (5)
  - Swollen tongue [None]
  - Tongue discomfort [None]
  - Oral discomfort [None]
  - Skin fissures [None]
  - Lip swelling [None]

NARRATIVE: CASE EVENT DATE: 20220202
